FAERS Safety Report 16252782 (Version 2)
Quarter: 2020Q4

REPORT INFORMATION
  Report Type: Report from Study
  Country: GB (occurrence: GB)
  Receive Date: 20190429
  Receipt Date: 20201209
  Transmission Date: 20210113
  Serious: Yes (Other)
  Sender: FDA-Public Use
  Company Number: GB-JNJFOC-20190431402

PATIENT
  Age: 50 Year
  Sex: Female

DRUGS (10)
  1. STELARA [Suspect]
     Active Substance: USTEKINUMAB
  2. METHOTREXATE. [Concomitant]
     Active Substance: METHOTREXATE
     Route: 065
  3. NAPROXEN. [Concomitant]
     Active Substance: NAPROXEN
     Route: 065
  4. DULOXETINE. [Concomitant]
     Active Substance: DULOXETINE
     Route: 065
  5. STELARA [Suspect]
     Active Substance: USTEKINUMAB
     Indication: PSORIATIC ARTHROPATHY
     Route: 058
     Dates: start: 20160412
  6. SERTRALINE [Concomitant]
     Active Substance: SERTRALINE HYDROCHLORIDE
     Dosage: IN THE MORNING
     Route: 065
  7. PARACETAMOL [Concomitant]
     Active Substance: ACETAMINOPHEN
     Route: 065
  8. ZOMORPH [Concomitant]
     Active Substance: MORPHINE SULFATE
     Route: 065
  9. SALAZOPYRIN [Concomitant]
     Active Substance: SULFASALAZINE
     Route: 065
  10. MONTELUKAST [Concomitant]
     Active Substance: MONTELUKAST SODIUM
     Dosage: AT NIGHT
     Route: 065

REACTIONS (4)
  - Lower respiratory tract infection [Unknown]
  - Influenza [Unknown]
  - Asthma [Unknown]
  - Pain [Unknown]

NARRATIVE: CASE EVENT DATE: 2019
